FAERS Safety Report 22203418 (Version 1)
Quarter: 2023Q2

REPORT INFORMATION
  Report Type: Spontaneous
  Country: US (occurrence: US)
  Receive Date: 20230412
  Receipt Date: 20230412
  Transmission Date: 20230722
  Serious: Yes (Hospitalization, Other)
  Sender: FDA-Public Use
  Company Number: US-Fresenius Medical Care Renal Therapies Group-FMC-2303-000335

PATIENT
  Age: 76 Year
  Sex: Male
  Weight: 77.180 kg

DRUGS (2)
  1. DELFLEX WITH DEXTROSE 1.5% LOW MAGNESIUM LOW CALCIUM [Suspect]
     Active Substance: CALCIUM CHLORIDE\DEXTROSE\MAGNESIUM CHLORIDE\SODIUM CHLORIDE\SODIUM LACTATE
     Indication: End stage renal disease
     Dosage: FILLS = 6; FILL VOLUME = 1000ML; TOTAL VOLUME = 2500ML; LAST FILL VOLUME = 13,500ML.
     Route: 033
  2. DELFLEX WITH DEXTROSE 2.5% LOW MAGNESIUM LOW CALCIUM [Suspect]
     Active Substance: CALCIUM CHLORIDE\DEXTROSE\MAGNESIUM CHLORIDE\SODIUM CHLORIDE\SODIUM LACTATE
     Indication: End stage renal disease
     Dosage: FILLS = 6; FILL VOLUME = 1000ML; TOTAL VOLUME = 2500ML; LAST FILL VOLUME = 13,500ML.
     Route: 033

REACTIONS (2)
  - Septic shock [Recovering/Resolving]
  - Peritonitis [Recovering/Resolving]
